FAERS Safety Report 13787246 (Version 2)
Quarter: 2017Q4

REPORT INFORMATION
  Report Type: Spontaneous
  Country: US (occurrence: US)
  Receive Date: 20170725
  Receipt Date: 20171010
  Transmission Date: 20180320
  Serious: No
  Sender: FDA-Public Use
  Company Number: US-JNJFOC-20170621168

PATIENT
  Age: 55 Year
  Sex: Male
  Weight: 147.42 kg

DRUGS (1)
  1. TYLENOL EXTRA STRENGTH [Suspect]
     Active Substance: ACETAMINOPHEN
     Indication: HEADACHE
     Dosage: 1-2 GELS, ONCE DAILY
     Route: 048

REACTIONS (1)
  - Incorrect dose administered [Unknown]
